FAERS Safety Report 18187111 (Version 2)
Quarter: 2020Q3

REPORT INFORMATION
  Report Type: Spontaneous
  Country: US (occurrence: US)
  Receive Date: 20200824
  Receipt Date: 20200831
  Transmission Date: 20201103
  Serious: No
  Sender: FDA-Public Use
  Company Number: US-TOLMAR, INC.-20US022417

PATIENT
  Sex: Male

DRUGS (2)
  1. ELIGARD [Interacting]
     Active Substance: LEUPROLIDE ACETATE
     Indication: BLOOD TESTOSTERONE INCREASED
  2. ELIGARD [Suspect]
     Active Substance: LEUPROLIDE ACETATE
     Indication: PROSTATE CANCER
     Dosage: 45 MG, Q 6 MONTH
     Route: 065
     Dates: start: 202002, end: 202002

REACTIONS (2)
  - Fatigue [Recovering/Resolving]
  - Hot flush [Recovered/Resolved]

NARRATIVE: CASE EVENT DATE: 202002
